FAERS Safety Report 13458941 (Version 5)
Quarter: 2017Q3

REPORT INFORMATION
  Report Type: Spontaneous
  Country: US (occurrence: US)
  Receive Date: 20170419
  Receipt Date: 20170912
  Transmission Date: 20171127
  Serious: Yes (Other)
  Sender: FDA-Public Use
  Company Number: US-JNJCP-30000379631

PATIENT
  Age: 64 Year
  Sex: Male
  Weight: 78 kg

DRUGS (9)
  1. PRAVASTATIN [Concomitant]
     Indication: BLOOD CHOLESTEROL INCREASED
     Dosage: ONE SINCE 32 YEARS
  2. ATACAND [Concomitant]
     Indication: HYPERTENSION
     Dosage: ONE SINCE 32 YEARS
  3. AMBIEN [Concomitant]
     Dosage: 10 MILLIGRAM ONE SINCE ONE MONTH
  4. TRAMADOL [Concomitant]
     Indication: PAIN
     Dosage: 10 MILLIGRAM AS NEEDED SINCE TWO MONTHS
  5. AVEENO DAILY MOISTURIZING [Suspect]
     Active Substance: DIMETHICONE
     Indication: DRY SKIN PROPHYLAXIS
     Dosage: TWO SQIURTS TWICE
     Route: 061
     Dates: start: 20170322, end: 20170322
  6. ELAVIL [Concomitant]
     Active Substance: AMITRIPTYLINE HYDROCHLORIDE
     Indication: NERVE INJURY
     Dosage: 50 MILLIGRAM ONE SINCE 32 YEARS
  7. MUPIROCIN. [Concomitant]
     Active Substance: MUPIROCIN
     Indication: ANTIBIOTIC THERAPY
     Dosage: ONE SINCE 32 YEARS
  8. NAPROXEN SODIUM. [Concomitant]
     Active Substance: NAPROXEN SODIUM
     Indication: MUSCLE RELAXANT THERAPY
     Dosage: AS NEEDED FOR 32 YEARS
  9. AMLODIPINE [Concomitant]
     Indication: HYPERTENSION
     Dosage: 10 MILLIGRAM ONE SINCE FIVE YEARS

REACTIONS (1)
  - Staphylococcal infection [Recovered/Resolved]

NARRATIVE: CASE EVENT DATE: 20170322
